FAERS Safety Report 8868169 (Version 1)
Quarter: 2012Q4

REPORT INFORMATION
  Report Type: 
  Country: US (occurrence: US)
  Receive Date: 20121025
  Receipt Date: 20121025
  Transmission Date: 20130627
  Serious: No
  Sender: FDA-Public Use
  Company Number: US-AMGEN-USASP2012019393

PATIENT
  Age: 68 Year
  Sex: Male
  Weight: 53 kg

DRUGS (7)
  1. ENBREL [Suspect]
     Indication: PRODUCT USED FOR UNKNOWN INDICATION
     Dosage: 50 mg, qwk
     Route: 058
  2. BISOPROLOL FUMERATE AND HYDROCHLOROTHIAZIDE [Concomitant]
     Dosage: 10 UNK, UNK
     Route: 058
  3. FOLIC ACID [Concomitant]
     Dosage: 1 mg, UNK
  4. METHOTREXATE [Concomitant]
     Dosage: 2.5 mg, UNK
  5. LOSARTAN POTASSIUM [Concomitant]
     Dosage: 100 mg, UNK
  6. FISH OIL NATURE MADE [Concomitant]
     Dosage: UNK
  7. VICODIN [Concomitant]
     Dosage: 5 mg, UNK

REACTIONS (1)
  - Abdominal pain upper [Unknown]
